FAERS Safety Report 16413976 (Version 1)
Quarter: 2019Q2

REPORT INFORMATION
  Report Type: Spontaneous
  Country: MX (occurrence: MX)
  Receive Date: 20190611
  Receipt Date: 20190611
  Transmission Date: 20190711
  Serious: Yes (Other)
  Sender: FDA-Public Use
  Company Number: MX-FERRINGPH-2019FE03220

PATIENT

DRUGS (2)
  1. LYSTEDA [Suspect]
     Active Substance: TRANEXAMIC ACID
     Indication: CHLOASMA
     Dosage: 650 MG, 2 TIMES DAILY
     Route: 048
     Dates: start: 20190415, end: 20190506
  2. LYSTEDA [Suspect]
     Active Substance: TRANEXAMIC ACID
     Dosage: 650 MG, 2 TIMES DAILY
     Route: 048
     Dates: start: 20181029, end: 20190212

REACTIONS (3)
  - Product use in unapproved indication [Unknown]
  - Exposure during pregnancy [Unknown]
  - Abortion spontaneous [Unknown]
